FAERS Safety Report 6294999-9 (Version None)
Quarter: 2009Q3

REPORT INFORMATION
  Report Type: 
  Country: None (occurrence: None)
  Receive Date: 20090731
  Receipt Date: 20090731
  Transmission Date: 20100115
  Serious: Yes (Other)
  Sender: FDA-Public Use
  Company Number: None

PATIENT
  Age: 79 Year
  Sex: Female
  Weight: 41.7309 kg

DRUGS (1)
  1. ACTONEL [Suspect]
     Indication: OSTEOPOROSIS
     Dosage: 150 MG ONCE PER MONTH PO
     Route: 048
     Dates: start: 20090125, end: 20090630

REACTIONS (5)
  - ABASIA [None]
  - ARTHRALGIA [None]
  - BONE PAIN [None]
  - DYSSTASIA [None]
  - MYALGIA [None]
